FAERS Safety Report 18565523 (Version 1)
Quarter: 2020Q4

REPORT INFORMATION
  Report Type: Spontaneous
  Country: BR (occurrence: BR)
  Receive Date: 20201201
  Receipt Date: 20201201
  Transmission Date: 20210114
  Serious: Yes (Other)
  Sender: FDA-Public Use
  Company Number: BR-INSUD PHARMA-2011BR00261

PATIENT

DRUGS (1)
  1. NUVESSA [Suspect]
     Active Substance: METRONIDAZOLE
     Indication: LIVER ABSCESS
     Dosage: UNKNOWN DOSE, CONTINUOUS USE
     Route: 065

REACTIONS (5)
  - Peripheral sensory neuropathy [Not Recovered/Not Resolved]
  - Neurotoxicity [Recovering/Resolving]
  - Neuropathy peripheral [Not Recovered/Not Resolved]
  - Nystagmus [Recovered/Resolved]
  - Encephalopathy [Recovered/Resolved]
